FAERS Safety Report 10200735 (Version 1)
Quarter: 2014Q2

REPORT INFORMATION
  Report Type: Spontaneous
  Country: US (occurrence: None)
  Receive Date: 20140523
  Receipt Date: 20140523
  Transmission Date: 20141212
  Serious: No
  Sender: FDA-Public Use
  Company Number: None

PATIENT
  Age: 29 Year
  Sex: Female
  Weight: 53.52 kg

DRUGS (2)
  1. DIFFERIN GEL [Suspect]
     Indication: ACNE
     Dosage: APPLY THIS LAYER ONCE DAILY APPLIED TO A SURFACE, USUALLY THE SKIN
     Route: 061
  2. DIFFERIN GEL [Suspect]
     Indication: PROPHYLAXIS
     Dosage: APPLY THIS LAYER ONCE DAILY APPLIED TO A SURFACE, USUALLY THE SKIN
     Route: 061

REACTIONS (3)
  - Dyspnoea [None]
  - Rash [None]
  - Urticaria [None]
